FAERS Safety Report 9146910 (Version 1)
Quarter: 2013Q1

REPORT INFORMATION
  Report Type: Spontaneous
  Country: DK (occurrence: None)
  Receive Date: 20130225
  Receipt Date: 20130225
  Transmission Date: 20140127
  Serious: Yes (Death)
  Sender: FDA-Public Use
  Company Number: 2013MA001267

PATIENT
  Age: 68 Year
  Sex: Male

DRUGS (1)
  1. OXALIPLATIN FOR INJECTION [Suspect]
     Indication: COLON CANCER
     Dosage: 85  MG/M**2;    ;IV   NOS?07/30/2012  -  07/30/2012
     Route: 042
     Dates: start: 20120730, end: 20120730

REACTIONS (5)
  - Cardiac arrest [None]
  - Septic shock [None]
  - Hypokalaemia [None]
  - Hepatic enzyme increased [None]
  - Inflammation [None]
